FAERS Safety Report 8881152 (Version 1)
Quarter: 2012Q4

REPORT INFORMATION
  Report Type: 
  Country: GB (occurrence: GB)
  Receive Date: 20121031
  Receipt Date: 20121031
  Transmission Date: 20130627
  Serious: Yes (Life-Threatening)
  Sender: FDA-Public Use
  Company Number: GB-ASTRAZENECA-2012SE82603

PATIENT
  Age: 55 Year
  Sex: Male

DRUGS (2)
  1. BUPIVACAINE [Suspect]
     Indication: EPIDURAL ANAESTHESIA
     Route: 037
  2. TRIAMCINOLONE [Suspect]
     Indication: EPIDURAL ANAESTHESIA
     Route: 037

REACTIONS (6)
  - Headache [Unknown]
  - Loss of consciousness [Recovered/Resolved]
  - Bradycardia [Unknown]
  - Hypotension [Unknown]
  - Anaesthetic complication [Unknown]
  - Pneumocephalus [Unknown]
